FAERS Safety Report 7207602-8 (Version None)
Quarter: 2011Q1

REPORT INFORMATION
  Report Type: 
  Country: None (occurrence: None)
  Receive Date: 20110103
  Receipt Date: 20101222
  Transmission Date: 20110831
  Serious: Yes (Other)
  Sender: FDA-Public Use
  Company Number: US-ELI_LILLY_AND_COMPANY-US201011005707

PATIENT
  Sex: Female
  Weight: 90.703 kg

DRUGS (14)
  1. TRIAMTERENE AND HYDROCHLOROTHIAZIDE [Concomitant]
     Indication: HYPERTENSION
     Dosage: 25 MG, DAILY (1/D)
     Route: 048
  2. TRAMADOL [Concomitant]
     Indication: ARTHRITIS
     Dosage: UNK, 2/D
     Route: 048
  3. FERROUS SULFATE [Concomitant]
  4. LEVEMIR [Concomitant]
     Indication: TYPE 2 DIABETES MELLITUS
     Dosage: 14 UNK, 2/D
     Dates: start: 20090630
  5. GLIMEPIRIDE [Concomitant]
     Indication: TYPE 2 DIABETES MELLITUS
     Dosage: 4 MG, DAILY (1/D)
     Route: 048
  6. DIOVAN [Concomitant]
     Dosage: 160 MG, 2/D
     Route: 048
  7. BYETTA [Suspect]
     Indication: TYPE 2 DIABETES MELLITUS
     Dosage: 5 UG, 2/D
     Route: 058
     Dates: start: 20070724, end: 20080122
  8. METFORMIN HCL [Concomitant]
     Indication: TYPE 2 DIABETES MELLITUS
     Dosage: 500 MG, 3/D
     Route: 048
  9. CO-Q10 [Concomitant]
     Indication: NEUROPATHY PERIPHERAL
  10. BYETTA [Suspect]
     Dosage: 10 UG, 2/D
     Route: 058
     Dates: start: 20080122
  11. CALCIUM [Concomitant]
  12. CARVEDILOL [Concomitant]
     Indication: HYPERTENSION
     Dosage: 25 MG, 2/D
     Route: 048
  13. FUROSEMIDE [Concomitant]
     Dosage: 40 MG, DAILY (1/D)
     Route: 048
  14. MENTAX [Concomitant]
     Indication: NEUROPATHY PERIPHERAL

REACTIONS (4)
  - CATARACT OPERATION COMPLICATION [None]
  - CATARACT [None]
  - VISUAL ACUITY REDUCED [None]
  - MACULAR HOLE [None]
